FAERS Safety Report 5173655-4 (Version None)
Quarter: 2006Q4

REPORT INFORMATION
  Report Type: 
  Country: None (occurrence: None)
  Receive Date: 20061214
  Receipt Date: 20061004
  Transmission Date: 20070319
  Serious: No
  Sender: FDA-Public Use
  Company Number: US-AMGEN-US195903

PATIENT
  Sex: Female

DRUGS (3)
  1. ENBREL [Suspect]
     Indication: RHEUMATOID ARTHRITIS
     Route: 058
     Dates: start: 20050622
  2. METHOTREXATE [Concomitant]
     Route: 030
     Dates: start: 20051220
  3. PLAQUENIL [Concomitant]
     Route: 048
     Dates: start: 20060612

REACTIONS (2)
  - ALOPECIA [None]
  - INJECTION SITE PAIN [None]
